FAERS Safety Report 8027923-9 (Version None)
Quarter: 2012Q1

REPORT INFORMATION
  Report Type: 
  Country: None (occurrence: None)
  Receive Date: 20120106
  Receipt Date: 20111228
  Transmission Date: 20120608
  Serious: Yes (Hospitalization)
  Sender: FDA-Public Use
  Company Number: US-JNJFOC-20111212609

PATIENT
  Sex: Male
  Weight: 49.7 kg

DRUGS (3)
  1. HUMIRA [Concomitant]
     Dates: start: 20090417
  2. REMICADE [Suspect]
     Indication: COLITIS ULCERATIVE
     Route: 042
     Dates: start: 20070804
  3. AZATHIOPRINE [Concomitant]

REACTIONS (1)
  - FISTULA [None]
